FAERS Safety Report 4863214-2 (Version None)
Quarter: 2005Q4

REPORT INFORMATION
  Report Type: 
  Country: None (occurrence: None)
  Receive Date: 20051201
  Receipt Date: 20050722
  Transmission Date: 20060501
  Serious: No
  Sender: FDA-Public Use
  Company Number: 2005PV000547

PATIENT
  Age: 33 Year
  Sex: Female
  Weight: 104.3273 kg

DRUGS (6)
  1. BYETTA [Suspect]
     Indication: DIABETES MELLITUS NON-INSULIN-DEPENDENT
     Dosage: 10  MCG; BID; SC; 5 MCG; SC
     Route: 058
     Dates: end: 20050711
  2. BYETTA [Suspect]
     Indication: DIABETES MELLITUS NON-INSULIN-DEPENDENT
     Dosage: 10  MCG; BID; SC; 5 MCG; SC
     Route: 058
     Dates: start: 20050711
  3. AMARYL [Concomitant]
  4. CARTIA XT [Concomitant]
  5. LIPITOR [Concomitant]
  6. LISINOPRIL [Concomitant]

REACTIONS (2)
  - DRUG EFFECT DECREASED [None]
  - INJECTION SITE PAIN [None]
